FAERS Safety Report 24972419 (Version 1)
Quarter: 2025Q1

REPORT INFORMATION
  Report Type: Spontaneous
  Country: US (occurrence: None)
  Receive Date: 20250215
  Receipt Date: 20250215
  Transmission Date: 20250409
  Serious: No
  Sender: ALEXION PHARMACEUTICALS
  Company Number: US-AstraZeneca-2003UW04199

PATIENT
  Age: 64 Year
  Weight: 68.2 kg

DRUGS (2)
  1. NEXIUM [Suspect]
     Active Substance: ESOMEPRAZOLE MAGNESIUM
     Indication: Oesophagitis
     Dosage: 40 MILLIGRAM, QD
  2. PREDNISONE [Concomitant]
     Active Substance: PREDNISONE

REACTIONS (2)
  - Headache [Unknown]
  - Tinnitus [Unknown]
